FAERS Safety Report 16742672 (Version 4)
Quarter: 2020Q2

REPORT INFORMATION
  Report Type: Report from Study
  Country: US (occurrence: US)
  Receive Date: 20190826
  Receipt Date: 20200424
  Transmission Date: 20200713
  Serious: Yes (Life-Threatening, Hospitalization, Disabling, Other)
  Sender: FDA-Public Use
  Company Number: PHEH2019US035394

PATIENT
  Age: 77 Year
  Sex: Male
  Weight: 104.3 kg

DRUGS (3)
  1. COUMADIN [Concomitant]
     Active Substance: WARFARIN SODIUM
     Indication: PRODUCT USED FOR UNKNOWN INDICATION
     Dosage: UNK
     Route: 048
     Dates: start: 20060724
  2. ENTRESTO [Suspect]
     Active Substance: SACUBITRIL\VALSARTAN
     Indication: LEFT VENTRICULAR FAILURE
     Dosage: 1 DF (SACUBITRIL 24 MG/ VALSARTAN 26 MG), UNK
     Route: 048
     Dates: start: 20190220
  3. ENTRESTO [Suspect]
     Active Substance: SACUBITRIL\VALSARTAN
     Indication: CARDIAC FAILURE CONGESTIVE

REACTIONS (13)
  - Cerebrovascular accident [Unknown]
  - Aphasia [Unknown]
  - Dizziness [Unknown]
  - Fall [Unknown]
  - International normalised ratio increased [Unknown]
  - Dysphagia [Unknown]
  - Coordination abnormal [Unknown]
  - Balance disorder [Unknown]
  - Sensory loss [Unknown]
  - Prothrombin time prolonged [Unknown]
  - Cerebral haemorrhage [Unknown]
  - Gait disturbance [Unknown]
  - Headache [Unknown]

NARRATIVE: CASE EVENT DATE: 20190304
